FAERS Safety Report 9237603 (Version 4)
Quarter: 2014Q1

REPORT INFORMATION
  Report Type: Report from Study
  Country: JP (occurrence: JP)
  Receive Date: 20130418
  Receipt Date: 20140226
  Transmission Date: 20141002
  Serious: Yes (Hospitalization)
  Sender: FDA-Public Use
  Company Number: JP-PFIZER INC-2013116334

PATIENT
  Age: 76 Year
  Sex: Male
  Weight: 48.3 kg

DRUGS (5)
  1. XALKORI [Suspect]
     Indication: NON-SMALL CELL LUNG CANCER
     Dosage: 250 MG, 2X/DAY
     Route: 048
     Dates: start: 20130110, end: 20130131
  2. XALKORI [Suspect]
     Dosage: 250 MG, 1X/DAY
     Route: 048
     Dates: start: 20130201, end: 20130226
  3. URSO [Concomitant]
     Dosage: 200 MG, 3X/DAY
     Route: 048
  4. VESICARE [Concomitant]
     Dosage: 5 MG, 1X/DAY
     Route: 048
  5. MAGMITT [Concomitant]
     Dosage: 500 MG, 3X/DAY
     Route: 048

REACTIONS (2)
  - Urinary tract obstruction [Recovering/Resolving]
  - Dizziness [Recovered/Resolved]
